FAERS Safety Report 13852476 (Version 1)
Quarter: 2017Q3

REPORT INFORMATION
  Report Type: Spontaneous
  Country: US (occurrence: US)
  Receive Date: 20170810
  Receipt Date: 20170810
  Transmission Date: 20171127
  Serious: No
  Sender: FDA-Public Use
  Company Number: US-AMGEN-USASP2017117747

PATIENT
  Sex: Female

DRUGS (3)
  1. ENBREL [Suspect]
     Active Substance: ETANERCEPT
     Indication: PRODUCT USED FOR UNKNOWN INDICATION
     Dosage: UNK
     Route: 065
  2. MTX [Suspect]
     Active Substance: METHOTREXATE SODIUM
     Indication: PRODUCT USED FOR UNKNOWN INDICATION
     Dosage: UNK
     Route: 065
  3. XELJANZ XR [Suspect]
     Active Substance: TOFACITINIB CITRATE
     Indication: PRODUCT USED FOR UNKNOWN INDICATION
     Dosage: 11 MG, UNK
     Route: 065

REACTIONS (26)
  - Dry mouth [Unknown]
  - Arthralgia [Unknown]
  - Fatigue [Unknown]
  - Osteoarthritis [Unknown]
  - Psoriasis [Unknown]
  - Headache [Unknown]
  - Cartilage injury [Unknown]
  - Weight decreased [Unknown]
  - Finger deformity [Unknown]
  - Pain [Unknown]
  - Dry eye [Unknown]
  - Joint effusion [Unknown]
  - Joint swelling [Unknown]
  - Treatment failure [Unknown]
  - Raynaud^s phenomenon [Unknown]
  - Hypoaesthesia [Unknown]
  - Hypertension [Unknown]
  - Rotator cuff syndrome [Unknown]
  - Rash [Unknown]
  - Vision blurred [Unknown]
  - Muscular weakness [Unknown]
  - Nail disorder [Unknown]
  - Myalgia [Unknown]
  - Increased tendency to bruise [Unknown]
  - Loss of personal independence in daily activities [Unknown]
  - Foot deformity [Unknown]

NARRATIVE: CASE EVENT DATE: 201209
